FAERS Safety Report 10597260 (Version 1)
Quarter: 2014Q4

REPORT INFORMATION
  Report Type: Spontaneous
  Country: US (occurrence: US)
  Receive Date: 20141121
  Receipt Date: 20141121
  Transmission Date: 20150529
  Serious: Yes (Other)
  Sender: FDA-Public Use
  Company Number: US-ROCHE-1492507

PATIENT
  Age: 81 Year
  Sex: Female

DRUGS (3)
  1. AVASTIN [Suspect]
     Active Substance: BEVACIZUMAB
     Dosage: 3 INJECTIONS
     Route: 050
  2. AVASTIN [Suspect]
     Active Substance: BEVACIZUMAB
     Indication: AGE-RELATED MACULAR DEGENERATION
     Route: 050
  3. AVASTIN [Suspect]
     Active Substance: BEVACIZUMAB
     Dosage: 5 DOSES
     Route: 050

REACTIONS (1)
  - Ureteric cancer [Unknown]
